FAERS Safety Report 18978317 (Version 3)
Quarter: 2021Q2

REPORT INFORMATION
  Report Type: Spontaneous
  Country: US (occurrence: US)
  Receive Date: 20210307
  Receipt Date: 20210405
  Transmission Date: 20210717
  Serious: Yes (Other)
  Sender: FDA-Public Use
  Company Number: US-GLENMARK PHARMACEUTICALS-2021GMK052020

PATIENT

DRUGS (8)
  1. LEVOTHYROXINE. [Concomitant]
     Active Substance: LEVOTHYROXINE
     Indication: THYROID DISORDER
     Dosage: 112 MCG, UNK (START DATE: 20 YEARS AGO; MFR BY: AMNEAL)
     Route: 048
  2. ESTRADIOL VAGINAL INSERTS USP [Suspect]
     Active Substance: ESTRADIOL
     Indication: URINARY TRACT INFECTION
     Dosage: UNK
     Route: 067
     Dates: start: 20210201
  3. D?MANNOSE [Concomitant]
     Indication: SUPPLEMENTATION THERAPY
     Dosage: 4200 MILLIGRAM, UNK (MFR BY: HORBAACH)
     Route: 048
     Dates: start: 2019
  4. PROBIOTIC [BIFIDOBACTERIUM LACTIS] [Concomitant]
     Active Substance: BIFIDOBACTERIUM ANIMALIS LACTIS
     Indication: URINARY TRACT INFECTION
     Dosage: (AS REPORTED DOSE: 50 BILLION, 38 PROBIOTIC STRENGTH) (MFR BY: GARDEN OF LIFE)
     Route: 048
     Dates: start: 2020
  5. D?MANNOSE [Concomitant]
     Indication: URINARY TRACT INFECTION
  6. METHENAMINE [Concomitant]
     Active Substance: METHENAMINE
     Indication: URINARY TRACT INFECTION
     Dosage: 2 GRAM, UNK (MFR BY: ALVOGEN INC)
     Route: 048
     Dates: start: 2019
  7. VITAMIN C [Concomitant]
     Active Substance: ASCORBIC ACID
     Indication: URINARY TRACT INFECTION
     Dosage: 2000 MILLIGRAM, UNK (MFR BY: NUTRICOST)
     Route: 048
     Dates: start: 2020
  8. CRANBERRY [ASCORBIC ACID;VACCINIUM MACROCARPON] [Concomitant]
     Active Substance: ASCORBIC ACID\CRANBERRY
     Indication: URINARY TRACT INFECTION
     Dosage: 25000 MILLIGRAM, UNK (MFR BY: PURITAN^S PRIDE)
     Route: 048
     Dates: start: 2020

REACTIONS (7)
  - Injury associated with device [Unknown]
  - Wrong technique in device usage process [Unknown]
  - Product substitution issue [Unknown]
  - Product use in unapproved indication [Unknown]
  - Vulvovaginal injury [Unknown]
  - Device defective [Unknown]
  - Device delivery system issue [Unknown]

NARRATIVE: CASE EVENT DATE: 202102
